FAERS Safety Report 9856362 (Version 4)
Quarter: 2014Q2

REPORT INFORMATION
  Report Type: Report from Study
  Country: US (occurrence: US)
  Receive Date: 20140130
  Receipt Date: 20140411
  Transmission Date: 20141212
  Serious: Yes (Hospitalization)
  Sender: FDA-Public Use
  Company Number: US-BRISTOL-MYERS SQUIBB COMPANY-20086211

PATIENT
  Age: 57 Year
  Sex: Male
  Weight: 99.6 kg

DRUGS (9)
  1. NIVOLUMAB [Suspect]
     Indication: METASTATIC MALIGNANT MELANOMA
     Route: 042
     Dates: start: 20130909, end: 20131118
  2. IPILIMUMAB [Suspect]
     Indication: METASTATIC MALIGNANT MELANOMA
     Route: 042
     Dates: start: 20131202, end: 20140113
  3. PROZAC [Concomitant]
     Dates: start: 20130118
  4. MIRAPEX [Concomitant]
     Dates: start: 20100110
  5. CRESTOR [Concomitant]
     Dates: start: 20100110
  6. TAMSULOSIN [Concomitant]
     Dates: start: 20100110
  7. NEXIUM [Concomitant]
     Dates: start: 20100305
  8. VITAMIN B12 [Concomitant]
     Dates: start: 20100810
  9. RITALIN [Concomitant]
     Dates: start: 20130821

REACTIONS (1)
  - Pyrexia [Recovered/Resolved]
